FAERS Safety Report 25061131 (Version 1)
Quarter: 2025Q1

REPORT INFORMATION
  Report Type: Report from Study
  Country: CA (occurrence: CA)
  Receive Date: 20250310
  Receipt Date: 20250310
  Transmission Date: 20250408
  Serious: Yes (Hospitalization)
  Sender: BEIGENE
  Company Number: CA-BEIGENE-BGN-2025-002127

PATIENT
  Age: 79 Year

DRUGS (6)
  1. BRUKINSA [Suspect]
     Active Substance: ZANUBRUTINIB
     Indication: Mantle cell lymphoma
  2. BRUKINSA [Suspect]
     Active Substance: ZANUBRUTINIB
  3. BRUKINSA [Suspect]
     Active Substance: ZANUBRUTINIB
     Route: 048
  4. BRUKINSA [Suspect]
     Active Substance: ZANUBRUTINIB
     Route: 048
  5. BRUKINSA [Suspect]
     Active Substance: ZANUBRUTINIB
  6. BRUKINSA [Suspect]
     Active Substance: ZANUBRUTINIB

REACTIONS (2)
  - Urinary tract infection [Recovered/Resolved]
  - Bacteraemia [Recovered/Resolved]
